FAERS Safety Report 7368555-5 (Version None)
Quarter: 2011Q1

REPORT INFORMATION
  Report Type: 
  Country: None (occurrence: None)
  Receive Date: 20110323
  Receipt Date: 20110316
  Transmission Date: 20110831
  Serious: Yes (Other)
  Sender: FDA-Public Use
  Company Number: FR-KINGPHARMUSA00001-K201100286

PATIENT
  Sex: Female

DRUGS (1)
  1. ALTACE [Suspect]
     Dosage: 10 MG, QD
     Route: 048
     Dates: start: 20030501, end: 20110205

REACTIONS (5)
  - PALPITATIONS [None]
  - DIARRHOEA [None]
  - HEADACHE [None]
  - NIGHTMARE [None]
  - NAUSEA [None]
